FAERS Safety Report 24800246 (Version 1)
Quarter: 2025Q1

REPORT INFORMATION
  Report Type: Spontaneous
  Country: US (occurrence: None)
  Receive Date: 20250102
  Receipt Date: 20250102
  Transmission Date: 20250409
  Serious: Yes (Hospitalization)
  Sender: FDA-CTU
  Company Number: None

PATIENT
  Age: 22 Year
  Sex: Female

DRUGS (5)
  1. ICATIBANT ACETATE [Suspect]
     Active Substance: ICATIBANT ACETATE
     Indication: Complement deficiency disease
     Dates: start: 202210
  2. TAKHZYRO [Concomitant]
     Active Substance: LANADELUMAB-FLYO
  3. EPINEPHRINE [Concomitant]
     Active Substance: EPINEPHRINE
  4. FIRAZYR [Concomitant]
     Active Substance: ICATIBANT ACETATE
  5. HAEGARDA [Concomitant]
     Active Substance: HUMAN C1-ESTERASE INHIBITOR

REACTIONS (2)
  - Swelling face [None]
  - Weight increased [None]

NARRATIVE: CASE EVENT DATE: 20241221
